FAERS Safety Report 14929185 (Version 1)
Quarter: 2018Q2

REPORT INFORMATION
  Report Type: Spontaneous
  Country: US (occurrence: US)
  Receive Date: 20180523
  Receipt Date: 20180523
  Transmission Date: 20180711
  Serious: Yes (Other)
  Sender: FDA-Public Use
  Company Number: US-009507513-1805USA007882

PATIENT
  Age: 71 Year
  Sex: Male

DRUGS (1)
  1. KEYTRUDA [Suspect]
     Active Substance: PEMBROLIZUMAB
     Indication: MALIGNANT MELANOMA STAGE III
     Dosage: EIGHT CYCLES, 2 MG/KG, ONCE EVERY 3  WEEKS
     Route: 042
     Dates: start: 201411, end: 201504

REACTIONS (1)
  - Malignant neoplasm progression [Recovering/Resolving]
